FAERS Safety Report 5417843-8 (Version None)
Quarter: 2007Q3

REPORT INFORMATION
  Report Type: 
  Country: None (occurrence: None)
  Receive Date: 20070817
  Receipt Date: 20070816
  Transmission Date: 20080115
  Serious: Yes (Hospitalization)
  Sender: FDA-Public Use
  Company Number: GB-BAYER-200710740BNE

PATIENT
  Age: 70 Year
  Sex: Male
  Weight: 81 kg

DRUGS (2)
  1. GLUCOBAY [Suspect]
     Dosage: TOTAL DAILY DOSE: 100 MG
     Dates: start: 20070627, end: 20070630
  2. GEMFIBROZILO [Concomitant]
     Dates: start: 20070627, end: 20070630

REACTIONS (5)
  - FATIGUE [None]
  - HYPERSOMNIA [None]
  - LETHARGY [None]
  - LYMPHOMA [None]
  - MALAISE [None]
